FAERS Safety Report 8240766-6 (Version None)
Quarter: 2012Q1

REPORT INFORMATION
  Report Type: 
  Country: None (occurrence: None)
  Receive Date: 20120328
  Receipt Date: 20120320
  Transmission Date: 20120608
  Serious: Yes (Other)
  Sender: FDA-Public Use
  Company Number: PHHY2012BR024949

PATIENT
  Sex: Male

DRUGS (5)
  1. CARVEDILOL [Suspect]
     Dosage: 25 UKN, BID
  2. GALVUS MET [Suspect]
     Dosage: (1000/50 MG), BID
  3. DIOVAN [Suspect]
     Dosage: 320 MG, UNK
  4. CLOPIDOGREL [Suspect]
     Dosage: UKN, QD
  5. LIPITOR [Suspect]
     Dosage: 40 UKN, QD

REACTIONS (4)
  - TYPE 2 DIABETES MELLITUS [None]
  - BLOOD GLUCOSE INCREASED [None]
  - OEDEMA PERIPHERAL [None]
  - ACUTE MYOCARDIAL INFARCTION [None]
